FAERS Safety Report 4564149-5 (Version None)
Quarter: 2005Q1

REPORT INFORMATION
  Report Type: 
  Country: None (occurrence: None)
  Receive Date: 20050126
  Receipt Date: 20050107
  Transmission Date: 20050727
  Serious: Yes (Other)
  Sender: FDA-Public Use
  Company Number: US_0501110040

PATIENT
  Age: 69 Year
  Sex: Male

DRUGS (2)
  1. GEMCITABINE HYDROCHLORIDE-IV (GEMCITABINE) [Suspect]
     Indication: DIFFUSE LARGE B-CELL LYMPHOMA STAGE IV
     Dosage: 1000 MG/M2 OTHER
     Route: 050
  2. RITUXIMAB [Concomitant]

REACTIONS (4)
  - HAEMATOTOXICITY [None]
  - LYMPHADENOPATHY [None]
  - NAUSEA [None]
  - PNEUMONIA [None]
